FAERS Safety Report 8307839-0 (Version None)
Quarter: 2012Q2

REPORT INFORMATION
  Report Type: 
  Country: None (occurrence: None)
  Receive Date: 20120424
  Receipt Date: 20120412
  Transmission Date: 20120825
  Serious: Yes (Hospitalization)
  Sender: FDA-Public Use
  Company Number: US-ACTELION-A-NJ2012-63298

PATIENT

DRUGS (3)
  1. REMODULIN [Concomitant]
  2. SILDENAFIL [Concomitant]
  3. TRACLEER [Suspect]
     Indication: PULMONARY ARTERIAL HYPERTENSION
     Dosage: UNK
     Route: 048
     Dates: start: 20060801

REACTIONS (5)
  - DYSPNOEA [None]
  - LIVER FUNCTION TEST ABNORMAL [None]
  - COUGH [None]
  - PNEUMONIA [None]
  - HAEMOPTYSIS [None]
